FAERS Safety Report 6936648-X (Version None)
Quarter: 2010Q3

REPORT INFORMATION
  Report Type: 
  Country: None (occurrence: None)
  Receive Date: 20100819
  Receipt Date: 20100806
  Transmission Date: 20110219
  Serious: Yes (Other)
  Sender: FDA-Public Use
  Company Number: 016930

PATIENT

DRUGS (2)
  1. LACOSAMIDE [Suspect]
     Indication: STATUS EPILEPTICUS
  2. KEPPRA [Suspect]
     Indication: STATUS EPILEPTICUS
     Dosage: 250 MG BID

REACTIONS (1)
  - ATRIOVENTRICULAR BLOCK COMPLETE [None]
